FAERS Safety Report 8478604-9 (Version None)
Quarter: 2012Q2

REPORT INFORMATION
  Report Type: 
  Country: None (occurrence: None)
  Receive Date: 20120629
  Receipt Date: 20120627
  Transmission Date: 20120825
  Serious: Yes (Death, Life-Threatening, Hospitalization)
  Sender: FDA-Public Use
  Company Number: PHHY2012CA055093

PATIENT
  Age: 50 Year
  Sex: Female

DRUGS (4)
  1. MITOXANTRONE [Suspect]
     Indication: ACUTE MYELOID LEUKAEMIA
     Dosage: 10 MG/M2, UNK
  2. CYTARABINE [Suspect]
     Indication: ACUTE MYELOID LEUKAEMIA
     Dosage: 100 MG/M2, ON DAYS 1 TO 7
  3. IDARUBICIN HCL [Suspect]
     Indication: ACUTE MYELOID LEUKAEMIA
     Dosage: 12 MG/M2, ON DAYS 1 AND 3
  4. ETOPOSIDE [Suspect]
     Indication: ACUTE MYELOID LEUKAEMIA
     Dosage: 100 MG/M2 ON DAYS 1-5

REACTIONS (13)
  - ACUTE MYELOID LEUKAEMIA [None]
  - PETECHIAE [None]
  - PYREXIA [None]
  - KLEBSIELLA SEPSIS [None]
  - LARYNGOSPASM [None]
  - THROMBOCYTOPENIA [None]
  - PANNICULITIS [None]
  - COLITIS [None]
  - FEBRILE NEUTROPENIA [None]
  - MOUTH HAEMORRHAGE [None]
  - PANCYTOPENIA [None]
  - ALVEOLITIS ALLERGIC [None]
  - HAEMOPTYSIS [None]
